FAERS Safety Report 18693946 (Version 1)
Quarter: 2020Q4

REPORT INFORMATION
  Report Type: Spontaneous
  Country: US (occurrence: US)
  Receive Date: 20201230
  Receipt Date: 20201230
  Transmission Date: 20210114
  Serious: Yes (Death, Hospitalization)
  Sender: FDA-Public Use
  Company Number: None

PATIENT
  Age: 65 Year
  Sex: Male

DRUGS (14)
  1. AZITHROMYCIN ANHYDROUS. [Concomitant]
     Active Substance: AZITHROMYCIN ANHYDROUS
  2. SPIRIVA [Concomitant]
     Active Substance: TIOTROPIUM BROMIDE MONOHYDRATE
  3. CARVEDILOL. [Concomitant]
     Active Substance: CARVEDILOL
  4. DEXAMETHASON [Concomitant]
     Active Substance: DEXAMETHASONE
  5. FUROSEMIDE. [Concomitant]
     Active Substance: FUROSEMIDE
  6. PRAVASTATIN. [Concomitant]
     Active Substance: PRAVASTATIN
  7. ADVAOR DISKU [Concomitant]
  8. BENZONATE [Concomitant]
     Active Substance: BENZONATATE
  9. CEPHALEXIN. [Concomitant]
     Active Substance: CEPHALEXIN
  10. ELIQUIS [Concomitant]
     Active Substance: APIXABAN
  11. METHYLPRED [Concomitant]
     Active Substance: METHYLPREDNISOLONE
  12. ALBUTEROL AER [Concomitant]
     Active Substance: ALBUTEROL
  13. HUMIRA [Suspect]
     Active Substance: ADALIMUMAB
     Indication: COLITIS ULCERATIVE
     Dosage: OTHER DOSE:1 PEN;?
     Route: 058
     Dates: start: 20200219, end: 20201219
  14. IPRATROPIUM [Concomitant]
     Active Substance: IPRATROPIUM

REACTIONS (1)
  - COVID-19 [None]

NARRATIVE: CASE EVENT DATE: 20201229
